FAERS Safety Report 25161719 (Version 1)
Quarter: 2025Q2

REPORT INFORMATION
  Report Type: Spontaneous
  Country: US (occurrence: None)
  Receive Date: 20250404
  Receipt Date: 20250404
  Transmission Date: 20250717
  Serious: Yes (Hospitalization)
  Sender: FDA-CTU
  Company Number: None

PATIENT
  Age: 71 Year
  Sex: Male

DRUGS (1)
  1. IMATINIB MESYLATE [Suspect]
     Active Substance: IMATINIB MESYLATE
     Indication: Eosinophilia
     Dosage: FREQUENCY : DAILY;?

REACTIONS (9)
  - Adverse drug reaction [None]
  - Gastrointestinal disorder [None]
  - Rash [None]
  - Cardiac failure congestive [None]
  - Pericardial effusion [None]
  - Atrial fibrillation [None]
  - Swollen tongue [None]
  - Glossodynia [None]
  - Taste disorder [None]
